FAERS Safety Report 13260890 (Version 2)
Quarter: 2017Q1

REPORT INFORMATION
  Report Type: Spontaneous
  Country: US (occurrence: US)
  Receive Date: 20170222
  Receipt Date: 20170302
  Transmission Date: 20170428
  Serious: No
  Sender: FDA-Public Use
  Company Number: US-TEVA-731126ACC

PATIENT
  Age: 51 Year
  Sex: Female

DRUGS (20)
  1. METHYLPHENID [Concomitant]
     Active Substance: METHYLPHENIDATE
  2. MULTIVITAMIN [Concomitant]
     Active Substance: VITAMINS
  3. CALCIUM [Concomitant]
     Active Substance: CALCIUM
  4. ZOFRAN [Concomitant]
     Active Substance: ONDANSETRON HYDROCHLORIDE
  5. GABAPENTIN. [Concomitant]
     Active Substance: GABAPENTIN
  6. OMEPRAZOLE. [Concomitant]
     Active Substance: OMEPRAZOLE
  7. COPAXONE [Suspect]
     Active Substance: GLATIRAMER ACETATE
     Indication: MULTIPLE SCLEROSIS
     Dosage: 40MG, MON, WED, FRI
     Route: 058
     Dates: start: 20110608
  8. VITAMIN D [Concomitant]
     Active Substance: CHOLECALCIFEROL
  9. CYCLOBENZAPRINE [Concomitant]
     Active Substance: CYCLOBENZAPRINE
  10. LYRICA [Concomitant]
     Active Substance: PREGABALIN
  11. RITALIN [Concomitant]
     Active Substance: METHYLPHENIDATE HYDROCHLORIDE
  12. VITAMIN B12 [Concomitant]
     Active Substance: CYANOCOBALAMIN
  13. ALBUTEROL. [Concomitant]
     Active Substance: ALBUTEROL
  14. EPIPEN [Concomitant]
     Active Substance: EPINEPHRINE
  15. POTASSIUM [Concomitant]
     Active Substance: POTASSIUM
  16. BACLOFEN. [Concomitant]
     Active Substance: BACLOFEN
  17. PREDNISONE. [Concomitant]
     Active Substance: PREDNISONE
  18. VITAMIN E [Concomitant]
     Active Substance: .ALPHA.-TOCOPHEROL
  19. PROPRANOLOL [Concomitant]
     Active Substance: PROPRANOLOL HYDROCHLORIDE
  20. BENADRYL [Concomitant]
     Active Substance: DIPHENHYDRAMINE HYDROCHLORIDE

REACTIONS (6)
  - Limb discomfort [Unknown]
  - Hypersensitivity [Recovered/Resolved]
  - Gait disturbance [Unknown]
  - Dyspnoea [Recovered/Resolved]
  - Mobility decreased [Unknown]
  - Pain [Unknown]

NARRATIVE: CASE EVENT DATE: 201612
